FAERS Safety Report 13660929 (Version 1)
Quarter: 2017Q2

REPORT INFORMATION
  Report Type: Spontaneous
  Country: JP (occurrence: JP)
  Receive Date: 20170616
  Receipt Date: 20170616
  Transmission Date: 20170830
  Serious: Yes (Life-Threatening)
  Sender: FDA-Public Use
  Company Number: JP-FRESENIUS KABI-FK201705155

PATIENT
  Age: 36 Year
  Sex: Female

DRUGS (7)
  1. METHIMAZOLE. [Concomitant]
     Active Substance: METHIMAZOLE
     Indication: HYPERTHYROIDISM
     Route: 048
  2. MAGNESIUM SULFATE (MANUFACTURER UNKNOWN) [Suspect]
     Active Substance: MAGNESIUM SULFATE
     Indication: THREATENED LABOUR
     Route: 065
  3. RITODRINE [Suspect]
     Active Substance: RITODRINE
     Indication: THREATENED LABOUR
     Route: 065
  4. PROPYLTHIOURACIL. [Concomitant]
     Active Substance: PROPYLTHIOURACIL
     Indication: HYPERTHYROIDISM
     Route: 048
  5. METHIMAZOLE. [Concomitant]
     Active Substance: METHIMAZOLE
     Route: 048
  6. RITODRINE [Suspect]
     Active Substance: RITODRINE
     Route: 065
  7. MAGNESIUM SULFATE (MANUFACTURER UNKNOWN) [Suspect]
     Active Substance: MAGNESIUM SULFATE
     Route: 065

REACTIONS (6)
  - Cardiac failure congestive [Recovered/Resolved]
  - Acute respiratory failure [Recovered/Resolved]
  - Product use in unapproved indication [Recovered/Resolved]
  - Pulmonary oedema [Recovered/Resolved]
  - Maternal exposure during pregnancy [Recovered/Resolved]
  - Thyrotoxic crisis [Recovered/Resolved]
